FAERS Safety Report 7826125-6 (Version None)
Quarter: 2011Q4

REPORT INFORMATION
  Report Type: 
  Country: None (occurrence: None)
  Receive Date: 20111019
  Receipt Date: 20111013
  Transmission Date: 20120403
  Serious: Yes (Death, Life-Threatening, Other)
  Sender: FDA-Public Use
  Company Number: JP-CELGENEUS-087-21660-11101835

PATIENT
  Sex: Female
  Weight: 63 kg

DRUGS (3)
  1. LYRICA [Concomitant]
     Route: 065
  2. ABRAXANE [Suspect]
     Indication: BREAST CANCER
     Dosage: 400 MILLIGRAM
     Route: 041
     Dates: start: 20110124, end: 20110328
  3. ABRAXANE [Suspect]
     Dosage: 390 MILLIGRAM
     Route: 041
     Dates: start: 20110606, end: 20110627

REACTIONS (9)
  - STOMATITIS [None]
  - GAMMA-GLUTAMYLTRANSFERASE INCREASED [None]
  - ALTERED STATE OF CONSCIOUSNESS [None]
  - BLOOD ALKALINE PHOSPHATASE INCREASED [None]
  - DISEASE PROGRESSION [None]
  - PLATELET COUNT DECREASED [None]
  - BREAST CANCER [None]
  - HEPATIC FUNCTION ABNORMAL [None]
  - ALANINE AMINOTRANSFERASE INCREASED [None]
